FAERS Safety Report 9517965 (Version 2)
Quarter: 2013Q3

REPORT INFORMATION
  Report Type: Spontaneous
  Country: US (occurrence: US)
  Receive Date: 20130912
  Receipt Date: 20130924
  Transmission Date: 20140515
  Serious: No
  Sender: FDA-Public Use
  Company Number: US-PFIZER INC-2013259982

PATIENT
  Age: 63 Year
  Sex: Female
  Weight: 90.7 kg

DRUGS (6)
  1. ARTHROTEC [Suspect]
     Indication: ARTHRITIS
     Dosage: 200 MG/75 MG, 2X/DAY
     Route: 048
     Dates: start: 2006
  2. VERAPAMIL [Concomitant]
     Dosage: 90 MG, UNK
  3. CYCLOBENZAPRINE [Concomitant]
     Dosage: 10 MG, UNK
  4. HYDROCODONE W/ACETAMINOPHEN [Concomitant]
     Dosage: UNK
  5. AMBIEN [Concomitant]
     Dosage: UNK
  6. CRESTOR [Concomitant]
     Dosage: UNK

REACTIONS (1)
  - Memory impairment [Not Recovered/Not Resolved]
